FAERS Safety Report 8978262 (Version 1)
Quarter: 2012Q4

REPORT INFORMATION
  Report Type: 
  Country: GB (occurrence: GB)
  Receive Date: 20121220
  Receipt Date: 20121220
  Transmission Date: 20130627
  Serious: Yes (Hospitalization)
  Sender: FDA-Public Use
  Company Number: GB-WATSON-2012-22282

PATIENT
  Age: 44 Year
  Sex: Male

DRUGS (5)
  1. SODIUM VALPROATE (UNKNOWN) [Suspect]
     Indication: PRODUCT USED FOR UNKNOWN INDICATION
     Dosage: 750 mg, bid. 750mg in the morning and at night
     Route: 048
  2. SODIUM VALPROATE (UNKNOWN) [Suspect]
     Dosage: 500 mg, daily. at 4pm
     Route: 048
  3. RISPERIDONE [Concomitant]
     Indication: PRODUCT USED FOR UNKNOWN INDICATION
     Dosage: 2 mg, bid
     Route: 048
  4. ESOMEPRAZOLE [Concomitant]
     Indication: PRODUCT USED FOR UNKNOWN INDICATION
     Dosage: 20 mg, bid
     Route: 048
  5. LORAZEPAM [Concomitant]
     Indication: PRODUCT USED FOR UNKNOWN INDICATION
     Dosage: 1-2mg in twenty four hours as required.
     Route: 048

REACTIONS (2)
  - Pancreatitis [Unknown]
  - Amylase increased [Unknown]
